FAERS Safety Report 16889963 (Version 1)
Quarter: 2019Q4

REPORT INFORMATION
  Report Type: Spontaneous
  Country: US (occurrence: US)
  Receive Date: 20191007
  Receipt Date: 20191007
  Transmission Date: 20200122
  Serious: Yes (Other)
  Sender: FDA-Public Use
  Company Number: US-SA-2019SA272057

PATIENT
  Sex: Female

DRUGS (2)
  1. ZANTAC 150 (RANITIDINE HYDROCHLORIDE) [Suspect]
     Active Substance: RANITIDINE HYDROCHLORIDE
  2. TETANUS TOXOID [Suspect]
     Active Substance: TETANUS TOXOIDS
     Indication: IMMUNISATION

REACTIONS (12)
  - Weight decreased [Unknown]
  - Bursitis [Unknown]
  - Muscle spasms [Unknown]
  - Palpitations [Unknown]
  - Dizziness [Unknown]
  - Seizure [Unknown]
  - Flatulence [Unknown]
  - Blood sodium decreased [Recovered/Resolved]
  - Limb injury [Unknown]
  - Hypertension [Unknown]
  - Tendonitis [Unknown]
  - Malaise [Unknown]
